FAERS Safety Report 10006837 (Version 3)
Quarter: 2015Q3

REPORT INFORMATION
  Report Type: Spontaneous
  Country: US (occurrence: US)
  Receive Date: 20140313
  Receipt Date: 20150813
  Transmission Date: 20151125
  Serious: No
  Sender: FDA-Public Use
  Company Number: US-GILEAD-2012-0065550

PATIENT
  Age: 71 Year
  Sex: Female

DRUGS (1)
  1. LETAIRIS [Suspect]
     Active Substance: AMBRISENTAN
     Indication: COR PULMONALE CHRONIC
     Dosage: 5 MG, QD
     Route: 048
     Dates: start: 20121108

REACTIONS (7)
  - Vomiting [Unknown]
  - Swelling face [Unknown]
  - Eye pruritus [Unknown]
  - Pyrexia [Unknown]
  - Eye swelling [Unknown]
  - Asthma [Unknown]
  - Rash generalised [Unknown]
